FAERS Safety Report 9263155 (Version 3)
Quarter: 2013Q4

REPORT INFORMATION
  Report Type: Spontaneous
  Country: GB (occurrence: None)
  Receive Date: 20130429
  Receipt Date: 20131022
  Transmission Date: 20140711
  Serious: Yes (Hospitalization, Other)
  Sender: FDA-Public Use
  Company Number: AUR-APL-2013-03241

PATIENT
  Age: 25 Year
  Sex: Female

DRUGS (3)
  1. CITALOPRAM (CITALOPRAM) [Suspect]
     Indication: ANXIETY
     Dosage: (1 DOSAGE FORMS, 1 TOTAL)
  2. CONTRACEPTIVE IMPLANT (CONTRACEPTIVES) [Concomitant]
  3. ZIMOVANE (ZOPICLONE) [Concomitant]

REACTIONS (10)
  - Mobility decreased [None]
  - Dysarthria [None]
  - Hemiparesis [None]
  - Communication disorder [None]
  - Dizziness [None]
  - Chest discomfort [None]
  - Hypoaesthesia [None]
  - Paraesthesia [None]
  - Cerebrovascular accident [None]
  - Hypotension [None]
